FAERS Safety Report 13358209 (Version 3)
Quarter: 2017Q1

REPORT INFORMATION
  Report Type: Spontaneous
  Country: US (occurrence: US)
  Receive Date: 20170322
  Receipt Date: 20170328
  Transmission Date: 20170429
  Serious: Yes (Other)
  Sender: FDA-Public Use
  Company Number: US-PFIZER INC-2017111628

PATIENT
  Age: 76 Year
  Sex: Female
  Weight: 73.47 kg

DRUGS (10)
  1. XELJANZ [Suspect]
     Active Substance: TOFACITINIB CITRATE
     Indication: POLYMYALGIA RHEUMATICA
     Dosage: 5 MG, 2X/DAY
     Dates: start: 201612, end: 20170308
  2. ASPIRIN. [Concomitant]
     Active Substance: ASPIRIN
     Dosage: 81 MG, 1X/DAY (AT NIGHT)
  3. FOLIC ACID. [Concomitant]
     Active Substance: FOLIC ACID
     Indication: POLYMYALGIA RHEUMATICA
     Dosage: 1 MG, 2X/DAY
  4. BYSTOLIC [Concomitant]
     Active Substance: NEBIVOLOL HYDROCHLORIDE
     Indication: HYPERTENSION
     Dosage: 10 MG, 1X/DAY
  5. CALTRATE [Concomitant]
     Active Substance: CALCIUM CARBONATE
     Indication: BONE DISORDER
     Dosage: 1500 MG, 1X/DAY
  6. SYNTHROID [Concomitant]
     Active Substance: LEVOTHYROXINE SODIUM
     Dosage: 0.25 MG, UNK
  7. FISH OIL [Concomitant]
     Active Substance: FISH OIL
     Dosage: 1 DF, 2X/DAY (200/360)
  8. PROTONIX [Concomitant]
     Active Substance: PANTOPRAZOLE SODIUM
     Indication: ABDOMINAL DISCOMFORT
     Dosage: 40 MG, 1X/DAY
  9. SYNTHROID [Concomitant]
     Active Substance: LEVOTHYROXINE SODIUM
     Dosage: 0.75 MG, 1X/DAY
  10. LOSARTAN AND HYDROCHLOROTHIAZIDE [Concomitant]
     Active Substance: HYDROCHLOROTHIAZIDE\LOSARTAN POTASSIUM
     Indication: BLOOD PRESSURE MEASUREMENT
     Dosage: UNK, 1X/DAY, [HYDROCHLOROTHIAZIDE: 100 MG, LOSARTAN POTASSIUM: 25 MG]

REACTIONS (4)
  - Urinary tract infection bacterial [Recovered/Resolved]
  - Eye irritation [Not Recovered/Not Resolved]
  - Dry eye [Not Recovered/Not Resolved]
  - Eye pain [Not Recovered/Not Resolved]

NARRATIVE: CASE EVENT DATE: 201701
